FAERS Safety Report 8767962 (Version 1)
Quarter: 2012Q4

REPORT INFORMATION
  Report Type: 
  Country: US (occurrence: US)
  Receive Date: 20120829
  Receipt Date: 20120829
  Transmission Date: 20130627
  Serious: Yes (Hospitalization, Other)
  Sender: FDA-Public Use
  Company Number: US-ELI_LILLY_AND_COMPANY-US201108009050

PATIENT
  Sex: Male

DRUGS (13)
  1. FORTEO [Suspect]
     Indication: OSTEOPOROSIS
     Dosage: 20 ug, qd
     Route: 065
     Dates: start: 201109
  2. FORTEO [Suspect]
     Dosage: 20 ug, qd
     Route: 065
  3. FORTEO [Suspect]
     Dosage: 20 ug, qd
     Dates: end: 201207
  4. LUPRON [Concomitant]
     Indication: PROSTATE CANCER
     Dosage: every three months
  5. METFORMIN [Concomitant]
  6. GLIMEPIRIDE [Concomitant]
     Dosage: 4 mg, bid
  7. CASODEX [Concomitant]
     Dosage: UNK, qd
  8. ASPIRIN [Concomitant]
     Dosage: 81 mg, qd
  9. ATENOLOL [Concomitant]
     Dosage: 25 mg, qd
  10. SIMVASTATIN [Concomitant]
  11. SERTRALINE [Concomitant]
     Dosage: 50 mg, qd
  12. OMEPRAZOLE [Concomitant]
     Dosage: 20 mg, UNK
  13. HYDROCODONE [Concomitant]
     Indication: PAIN
     Dosage: UNK, prn

REACTIONS (11)
  - Gallbladder cancer metastatic [Unknown]
  - Weight decreased [Unknown]
  - Malnutrition [Unknown]
  - Asthenia [Not Recovered/Not Resolved]
  - Drug dose omission [Unknown]
  - Decreased appetite [Unknown]
  - Nausea [Unknown]
  - Vomiting [Unknown]
  - Abdominal pain upper [Unknown]
  - Chromaturia [Unknown]
  - Malaise [Unknown]
